FAERS Safety Report 6003593-6 (Version None)
Quarter: 2008Q4

REPORT INFORMATION
  Report Type: 
  Country: None (occurrence: None)
  Receive Date: 20081212
  Receipt Date: 20081212
  Transmission Date: 20090506
  Serious: Yes (Death)
  Sender: FDA-Public Use
  Company Number: None

PATIENT
  Age: 22 Year
  Sex: Female

DRUGS (2)
  1. DEXTROMETHORPHAN (NCH) (DEXTROMETHORPHAN) [Suspect]
  2. COCAINE (COCAINE) [Suspect]

REACTIONS (9)
  - ASPHYXIA [None]
  - COMA [None]
  - CONVULSION [None]
  - DRUG INTERACTION [None]
  - DRUG SCREEN POSITIVE [None]
  - FALL [None]
  - HEAD INJURY [None]
  - LIMB INJURY [None]
  - OVERDOSE [None]
